FAERS Safety Report 7771499-8 (Version None)
Quarter: 2011Q3

REPORT INFORMATION
  Report Type: 
  Country: None (occurrence: None)
  Receive Date: 20110922
  Receipt Date: 20110912
  Transmission Date: 20111222
  Serious: No
  Sender: FDA-Public Use
  Company Number: US-B.I. PHARMACEUTICALS,INC./RIDGEFIELD-2011-BP-22061BP

PATIENT
  Sex: Male

DRUGS (9)
  1. PRADAXA [Suspect]
     Indication: ATRIAL FIBRILLATION
     Dosage: 300 MG
     Route: 048
     Dates: start: 20110908, end: 20110909
  2. FLONASE [Concomitant]
     Indication: SEASONAL ALLERGY
     Route: 048
  3. ASPIRIN [Suspect]
     Indication: CARDIAC DISORDER
     Dosage: 81 MG
     Route: 048
  4. FLOMAX [Concomitant]
     Indication: PROSTATIC DISORDER
     Route: 048
  5. ACETAMINOPHEN [Concomitant]
     Indication: PAIN IN EXTREMITY
     Route: 048
  6. MULTI-VITAMIN [Concomitant]
     Indication: ROUTINE HEALTH MAINTENANCE
     Route: 048
  7. GLUCOSAMINE [Concomitant]
     Indication: ROUTINE HEALTH MAINTENANCE
     Route: 048
  8. ZESTRIL [Concomitant]
     Indication: CARDIAC DISORDER
     Route: 048
  9. LOPRESSOR [Concomitant]
     Indication: ATRIAL FIBRILLATION
     Route: 048

REACTIONS (3)
  - MUSCULOSKELETAL PAIN [None]
  - CHEST PAIN [None]
  - ERUCTATION [None]
